FAERS Safety Report 6354786-X (Version None)
Quarter: 2009Q3

REPORT INFORMATION
  Report Type: 
  Country: None (occurrence: None)
  Receive Date: 20090914
  Receipt Date: 20090904
  Transmission Date: 20100115
  Serious: Yes (Other)
  Sender: FDA-Public Use
  Company Number: US-PFIZER INC-2007091384

PATIENT
  Age: 92 Year
  Sex: Female

DRUGS (1)
  1. NORVASC [Suspect]
     Indication: HYPERTENSION

REACTIONS (3)
  - CARDIAC ARREST [None]
  - DIZZINESS [None]
  - NAUSEA [None]
